FAERS Safety Report 8225572-0 (Version None)
Quarter: 2012Q1

REPORT INFORMATION
  Report Type: 
  Country: None (occurrence: None)
  Receive Date: 20120321
  Receipt Date: 20120313
  Transmission Date: 20120608
  Serious: Yes (Disabling, Other)
  Sender: FDA-Public Use
  Company Number: PHHY2012GB021865

PATIENT
  Age: 60 Year
  Sex: Female

DRUGS (1)
  1. TRAMADOL HCL [Suspect]
     Indication: ARTHRALGIA
     Dosage: 50 MG, UNK
     Route: 048
     Dates: start: 20111202, end: 20120224

REACTIONS (5)
  - PAIN [None]
  - HYPERHIDROSIS [None]
  - ABDOMINAL PAIN UPPER [None]
  - BURNING SENSATION [None]
  - BONE PAIN [None]
